FAERS Safety Report 5014099-5 (Version None)
Quarter: 2006Q2

REPORT INFORMATION
  Report Type: 
  Country: None (occurrence: None)
  Receive Date: 20060414
  Receipt Date: 20060202
  Transmission Date: 20061013
  Serious: No
  Sender: FDA-Public Use
  Company Number: 2006SP000580

PATIENT
  Age: 55 Year
  Sex: Female
  Weight: 99.7913 kg

DRUGS (1)
  1. LUNESTA [Suspect]
     Dosage: 2 MG;X1;ORAL
     Route: 048
     Dates: start: 20060123, end: 20060123

REACTIONS (4)
  - DECREASED APPETITE [None]
  - DYSGEUSIA [None]
  - INSOMNIA [None]
  - NAUSEA [None]
